FAERS Safety Report 6219053-3 (Version None)
Quarter: 2009Q2

REPORT INFORMATION
  Report Type: 
  Country: None (occurrence: None)
  Receive Date: 20090608
  Receipt Date: 20090529
  Transmission Date: 20091009
  Serious: Yes (Hospitalization, Disabling, Other)
  Sender: FDA-Public Use
  Company Number: US-MERCK-0903USA01811

PATIENT
  Age: 35 Year
  Sex: Female

DRUGS (5)
  1. FOSAMAX [Suspect]
     Indication: OSTEOPENIA
     Route: 048
     Dates: start: 19980605, end: 20050601
  2. FOSAMAX [Suspect]
     Route: 048
     Dates: start: 19980605, end: 20050601
  3. FOSAMAX PLUS D [Suspect]
     Indication: OSTEOPENIA
     Route: 048
     Dates: start: 20050627, end: 20090201
  4. PREDNISONE [Concomitant]
     Indication: ASTHMA
     Route: 065
     Dates: start: 19860101
  5. THEOPHYLLINE [Concomitant]
     Indication: ASTHMA
     Route: 065
     Dates: start: 19870101

REACTIONS (24)
  - ABSCESS JAW [None]
  - ADVERSE EVENT [None]
  - ANXIETY [None]
  - ASTHMA [None]
  - BLOOD CHOLESTEROL INCREASED [None]
  - BLOOD POTASSIUM DECREASED [None]
  - DEPRESSION [None]
  - FIBROMYALGIA [None]
  - GASTROOESOPHAGEAL REFLUX DISEASE [None]
  - HYPERSENSITIVITY [None]
  - HYPERTENSION [None]
  - HYPOAESTHESIA ORAL [None]
  - HYPOGAMMAGLOBULINAEMIA [None]
  - INTERVERTEBRAL DISC DEGENERATION [None]
  - JAW DISORDER [None]
  - MUSCULOSKELETAL DISORDER [None]
  - OSTEOMYELITIS [None]
  - PARAESTHESIA [None]
  - PNEUMONIA [None]
  - RESPIRATORY FAILURE [None]
  - RIB FRACTURE [None]
  - SCOLIOSIS [None]
  - SINUS DISORDER [None]
  - THYROID DISORDER [None]
